FAERS Safety Report 6581053-1 (Version None)
Quarter: 2010Q1

REPORT INFORMATION
  Report Type: 
  Country: None (occurrence: None)
  Receive Date: 20100215
  Receipt Date: 20100202
  Transmission Date: 20100710
  Serious: Yes (Other)
  Sender: FDA-Public Use
  Company Number: PHEH2009US11260

PATIENT
  Sex: Female

DRUGS (8)
  1. RECLAST [Suspect]
     Dosage: 5 MG
     Dates: start: 20080601
  2. VICODIN [Concomitant]
  3. SINGULAIR [Concomitant]
     Indication: ASTHMA
     Dosage: 10 MG, QD
     Route: 048
     Dates: start: 20030101
  4. ALLEGRON [Concomitant]
  5. SYNTHROID [Concomitant]
     Indication: HYPERTHYROIDISM
     Dosage: 50 UG, QD
     Route: 048
     Dates: start: 20030101
  6. QVAR 40 [Concomitant]
     Indication: ASTHMA
     Dosage: 1 PUFF, QD
     Dates: start: 20030101
  7. ALLEGRA [Concomitant]
     Indication: MULTIPLE ALLERGIES
     Dosage: 60 MG, QD
     Route: 048
     Dates: start: 20030101
  8. PREMARIN [Concomitant]
     Indication: OESTROGEN THERAPY
     Dosage: 0.3 MG, UNK
     Route: 048
     Dates: start: 20030101

REACTIONS (14)
  - ARTHRALGIA [None]
  - ASTHENIA [None]
  - ATROPHY [None]
  - BONE PAIN [None]
  - CONDITION AGGRAVATED [None]
  - FATIGUE [None]
  - HYPOAESTHESIA [None]
  - IMPAIRED DRIVING ABILITY [None]
  - MUSCULOSKELETAL PAIN [None]
  - MYALGIA [None]
  - NECK PAIN [None]
  - PAIN IN EXTREMITY [None]
  - PARAESTHESIA [None]
  - QUALITY OF LIFE DECREASED [None]
